FAERS Safety Report 17478584 (Version 1)
Quarter: 2020Q1

REPORT INFORMATION
  Report Type: Spontaneous
  Country: US (occurrence: US)
  Receive Date: 20200228
  Receipt Date: 20200228
  Transmission Date: 20200409
  Serious: No
  Sender: FDA-Public Use
  Company Number: US-LEXICON PHARMACEUTICALS, INC-20-1606-00150

PATIENT
  Sex: Male

DRUGS (3)
  1. LANREOTIDE [Concomitant]
     Active Substance: LANREOTIDE
     Indication: PRODUCT USED FOR UNKNOWN INDICATION
     Route: 065
  2. XERMELO [Suspect]
     Active Substance: TELOTRISTAT ETHYL
     Indication: CARCINOID TUMOUR
     Dates: start: 20191011, end: 20200131
  3. XERMELO [Suspect]
     Active Substance: TELOTRISTAT ETHYL
     Route: 048
     Dates: start: 20200201

REACTIONS (1)
  - Constipation [Recovered/Resolved]
